FAERS Safety Report 6764795-4 (Version None)
Quarter: 2010Q2

REPORT INFORMATION
  Report Type: 
  Country: None (occurrence: None)
  Receive Date: 20100609
  Receipt Date: 20100505
  Transmission Date: 20101027
  Serious: No
  Sender: FDA-Public Use
  Company Number: 2010011447

PATIENT
  Age: 2 Year
  Sex: Female
  Weight: 17.2367 kg

DRUGS (4)
  1. CHILDREN'S ZYRTEC ALLERGY [Suspect]
     Indication: URTICARIA
     Dosage: PER DOCTOR, ORAL
     Route: 048
  2. CHILDREN'S BENADRYL ALLERGY [Suspect]
     Indication: URTICARIA
     Dosage: FIVE MILLILITER, ORAL
     Route: 048
     Dates: start: 20100112, end: 20100203
  3. CHILDREN'S BENADRYL ALLERGY [Suspect]
  4. STEROID ANTIBACTERIALS [Suspect]
     Indication: DRUG USE FOR UNKNOWN INDICATION

REACTIONS (5)
  - AGGRESSION [None]
  - DRUG INEFFECTIVE [None]
  - OFF LABEL USE [None]
  - PRODUCT QUALITY ISSUE [None]
  - WRONG DRUG ADMINISTERED [None]
